FAERS Safety Report 7360437-8 (Version None)
Quarter: 2011Q1

REPORT INFORMATION
  Report Type: 
  Country: None (occurrence: None)
  Receive Date: 20110318
  Receipt Date: 20110307
  Transmission Date: 20110831
  Serious: Yes (Hospitalization)
  Sender: FDA-Public Use
  Company Number: JP-JNJFOC-20110304500

PATIENT
  Sex: Male
  Weight: 58 kg

DRUGS (36)
  1. REMICADE [Suspect]
     Route: 042
  2. REMICADE [Suspect]
     Route: 042
  3. PREDONINE [Concomitant]
     Route: 048
  4. KENACORT [Concomitant]
     Dosage: LEFT EYE
  5. FLUMETHOLON [Concomitant]
  6. REMICADE [Suspect]
     Route: 042
  7. REMICADE [Suspect]
     Route: 042
  8. REMICADE [Suspect]
     Route: 042
  9. REMICADE [Suspect]
     Route: 042
  10. REMICADE [Suspect]
     Route: 042
  11. REMICADE [Suspect]
     Route: 042
  12. PREDONINE [Concomitant]
     Indication: BEHCET'S SYNDROME
     Route: 048
  13. KENACORT [Concomitant]
     Indication: BEHCET'S SYNDROME
     Dosage: LEFT EYE
  14. XALATAN [Concomitant]
     Indication: GLAUCOMA
  15. CRAVIT [Concomitant]
     Indication: PROPHYLAXIS
  16. REMICADE [Suspect]
     Route: 042
  17. REMICADE [Suspect]
     Route: 042
  18. REMICADE [Suspect]
     Route: 042
  19. REMICADE [Suspect]
     Route: 042
  20. REMICADE [Suspect]
     Route: 042
  21. BETAMETHASONE SODIUM PHOSPHATE [Concomitant]
     Dosage: BOTH EYES
  22. APLACE [Concomitant]
     Indication: PROPHYLAXIS
  23. REMICADE [Suspect]
     Route: 042
  24. PREDONINE [Concomitant]
     Route: 048
  25. GASTER D [Concomitant]
     Indication: PROPHYLAXIS
     Route: 048
  26. REMICADE [Suspect]
     Indication: BEHCET'S SYNDROME
     Route: 042
  27. PREDONINE [Concomitant]
     Route: 048
  28. KENACORT [Concomitant]
     Dosage: LEFT EYE
  29. FLUMETHOLON [Concomitant]
     Indication: BEHCET'S SYNDROME
  30. TIMOLOL MALEATE [Concomitant]
     Indication: GLAUCOMA
  31. REMICADE [Suspect]
     Route: 042
  32. PREDONINE [Concomitant]
     Route: 048
  33. BETAMETHASONE SODIUM PHOSPHATE [Concomitant]
     Indication: BEHCET'S SYNDROME
     Dosage: LEFT EYE
  34. PREDONINE [Concomitant]
     Route: 048
  35. PREDONINE [Concomitant]
     Route: 048
  36. ANTIHISTAMINES [Concomitant]
     Indication: PROPHYLAXIS

REACTIONS (2)
  - PNEUMOTHORAX [None]
  - LEUKAEMIA [None]
